FAERS Safety Report 9137165 (Version 1)
Quarter: 2013Q1

REPORT INFORMATION
  Report Type: Spontaneous
  Country: US (occurrence: US)
  Receive Date: 20130304
  Receipt Date: 20130304
  Transmission Date: 20140127
  Serious: No
  Sender: FDA-Public Use
  Company Number: US-ABBOTT-12P-163-1005468-00

PATIENT
  Sex: Male
  Weight: 90.8 kg

DRUGS (7)
  1. ANDROGEL [Suspect]
     Indication: BLOOD TESTOSTERONE DECREASED
     Dosage: 5 GRAM PACKETS
     Dates: start: 201207
  2. ATENOLOL [Concomitant]
     Indication: HYPERTENSION
  3. PRMIDONE [Concomitant]
     Indication: TREMOR
  4. CADUET [Concomitant]
     Indication: HYPERTENSION
  5. CADUET [Concomitant]
     Indication: BLOOD CHOLESTEROL INCREASED
  6. OXYCONTIN [Concomitant]
     Indication: PAIN
  7. OXYCODONE [Concomitant]
     Indication: PAIN

REACTIONS (1)
  - Dry eye [Not Recovered/Not Resolved]
